FAERS Safety Report 9386269 (Version 1)
Quarter: 2013Q3

REPORT INFORMATION
  Report Type: Spontaneous
  Country: CA (occurrence: CA)
  Receive Date: 20130708
  Receipt Date: 20130708
  Transmission Date: 20140515
  Serious: Yes (Other)
  Sender: FDA-Public Use
  Company Number: CA-ROCHE-1245663

PATIENT
  Age: 66 Year
  Sex: Female

DRUGS (8)
  1. XELODA [Suspect]
     Indication: PRODUCT USED FOR UNKNOWN INDICATION
     Route: 065
  2. TYKERB [Suspect]
     Indication: PRODUCT USED FOR UNKNOWN INDICATION
     Route: 048
  3. TYKERB [Suspect]
     Route: 048
  4. ALEVE [Concomitant]
     Dosage: TABLET
     Route: 065
  5. COLACE [Concomitant]
     Route: 065
  6. FISH OIL [Concomitant]
     Route: 065
  7. ONDANSETRON [Concomitant]
     Route: 065
  8. ZOMETA OR PLACEBO [Concomitant]
     Dosage: SOLUTION INTRAVENOUS
     Route: 065

REACTIONS (6)
  - Constipation [Not Recovered/Not Resolved]
  - Diarrhoea [Not Recovered/Not Resolved]
  - Malignant neoplasm progression [Not Recovered/Not Resolved]
  - Metastases to bone [Not Recovered/Not Resolved]
  - Metastases to liver [Not Recovered/Not Resolved]
  - Muscle spasms [Not Recovered/Not Resolved]
